FAERS Safety Report 9303779 (Version 3)
Quarter: 2013Q2

REPORT INFORMATION
  Report Type: Spontaneous
  Country: US (occurrence: US)
  Receive Date: 20130522
  Receipt Date: 20130611
  Transmission Date: 20140414
  Serious: Yes (Hospitalization)
  Sender: FDA-Public Use
  Company Number: US-GLAXOSMITHKLINE-A1024298A

PATIENT
  Age: 64 Year
  Sex: Female

DRUGS (3)
  1. REQUIP [Suspect]
     Indication: PRODUCT USED FOR UNKNOWN INDICATION
     Dosage: 1MG UNKNOWN
     Dates: start: 20090513
  2. FLOVENT [Concomitant]
  3. VENTOLIN HFA [Concomitant]

REACTIONS (1)
  - Hospitalisation [Unknown]
